FAERS Safety Report 14442566 (Version 1)
Quarter: 2018Q1

REPORT INFORMATION
  Report Type: Spontaneous
  Country: US (occurrence: US)
  Receive Date: 20180125
  Receipt Date: 20180125
  Transmission Date: 20180509
  Serious: No
  Sender: FDA-Public Use
  Company Number: US-ABBVIE-17K-163-2059047-00

PATIENT
  Sex: Female

DRUGS (3)
  1. XELJANZ XR [Concomitant]
     Active Substance: TOFACITINIB CITRATE
     Indication: PRODUCT USED FOR UNKNOWN INDICATION
  2. ENBREL [Suspect]
     Active Substance: ETANERCEPT
     Indication: PRODUCT USED FOR UNKNOWN INDICATION
     Route: 065
  3. HUMIRA [Suspect]
     Active Substance: ADALIMUMAB
     Indication: ARTHRITIS
     Route: 058

REACTIONS (11)
  - Dyspnoea [Unknown]
  - Spinal pain [Unknown]
  - Pyrexia [Unknown]
  - Joint effusion [Unknown]
  - Lymphadenopathy [Unknown]
  - Dysphoria [Unknown]
  - Anhedonia [Unknown]
  - Nodule [Unknown]
  - Arthralgia [Unknown]
  - Goitre [Unknown]
  - Musculoskeletal stiffness [Unknown]
